FAERS Safety Report 25024863 (Version 8)
Quarter: 2025Q4

REPORT INFORMATION
  Report Type: Spontaneous
  Country: JP (occurrence: JP)
  Receive Date: 20250228
  Receipt Date: 20251203
  Transmission Date: 20260118
  Serious: Yes (Hospitalization)
  Sender: AKEBIA THERAPEUTICS
  Company Number: JP-IQVIA-JT2025JP000051

PATIENT
  Age: 72 Year
  Sex: Male
  Weight: 74.9 kg

DRUGS (25)
  1. FERRIC CITRATE ANHYDROUS [Suspect]
     Active Substance: FERRIC CITRATE ANHYDROUS
     Indication: Iron deficiency anaemia
     Dosage: 500 MILLIGRAM, QD
     Route: 048
     Dates: start: 20220105
  2. ENARODUSTAT [Suspect]
     Active Substance: ENARODUSTAT
     Indication: Nephrogenic anaemia
     Dosage: 2 MILLIGRAM, QD
     Route: 048
     Dates: start: 20241113, end: 20250528
  3. LOKELMA [SODIUM ZIRCONIUM CYCLOSILICATE HYDRATE] [Concomitant]
     Indication: Diabetic nephropathy
     Dosage: 5 GRAM, QD
     Route: 048
  4. LOKELMA [SODIUM ZIRCONIUM CYCLOSILICATE HYDRATE] [Concomitant]
     Indication: Hyperkalaemia
  5. SODIUM BICARBONATE [Concomitant]
     Active Substance: SODIUM BICARBONATE
     Indication: Diabetic nephropathy
     Dosage: 1.5 GRAM, BID
     Route: 048
  6. SODIUM BICARBONATE [Concomitant]
     Active Substance: SODIUM BICARBONATE
     Indication: Metabolic acidosis
  7. CARVEDILOL [Concomitant]
     Active Substance: CARVEDILOL
     Indication: Hypertension
     Dosage: 10 MILLIGRAM, QD
     Route: 048
  8. JARDIANCE [Concomitant]
     Active Substance: EMPAGLIFLOZIN
     Indication: Type 2 diabetes mellitus
     Dosage: 10 MILLIGRAM, QD
     Route: 048
  9. ENTRESTO [Concomitant]
     Active Substance: SACUBITRIL\VALSARTAN
     Indication: Cardiac failure chronic
     Dosage: 100 MILLIGRAM, BID
     Route: 048
     Dates: end: 20250528
  10. NEXIUM [Concomitant]
     Active Substance: ESOMEPRAZOLE MAGNESIUM
     Indication: Gastrooesophageal reflux disease
     Dosage: 20 MILLIGRAM, QD
     Route: 048
     Dates: end: 20250328
  11. FEBUXOSTAT [Concomitant]
     Active Substance: FEBUXOSTAT
     Indication: Hyperuricaemia
     Dosage: 10 MILLIGRAM, QD
     Route: 048
     Dates: end: 20250328
  12. ASPIRIN [Concomitant]
     Active Substance: ASPIRIN
     Indication: Peripheral arterial occlusive disease
     Dosage: 100 MILLIGRAM, QD
     Route: 048
  13. ATORVASTATIN CALCIUM TRIHYDRATE [Concomitant]
     Active Substance: ATORVASTATIN CALCIUM TRIHYDRATE
     Indication: Dyslipidaemia
     Dosage: 10 MILLIGRAM, QD
     Route: 048
  14. SPIRONOLACTONE [Concomitant]
     Active Substance: SPIRONOLACTONE
     Indication: Hypertension
     Dosage: 25 MILLIGRAM, QD
     Route: 048
     Dates: end: 20250328
  15. NIFEDIPINE [Concomitant]
     Active Substance: NIFEDIPINE
     Indication: Hypertension
     Dosage: 20 MILLIGRAM, QD
     Route: 048
     Dates: end: 20250328
  16. AZOSEMIDE [Concomitant]
     Active Substance: AZOSEMIDE
     Indication: Cardiac failure chronic
     Dosage: 60 MILLIGRAM, QD
     Route: 048
     Dates: end: 20250528
  17. AZOSEMIDE [Concomitant]
     Active Substance: AZOSEMIDE
     Indication: Nephrogenic anaemia
  18. TRICHLORMETHIAZIDE [Concomitant]
     Active Substance: TRICHLORMETHIAZIDE
     Indication: Hypertension
     Dosage: 0.5 MILLIGRAM, QD
     Route: 048
     Dates: end: 20250528
  19. TRICHLORMETHIAZIDE [Concomitant]
     Active Substance: TRICHLORMETHIAZIDE
     Indication: Nephrogenic anaemia
  20. HERBALS [Concomitant]
     Active Substance: HERBALS
     Indication: Gastrooesophageal reflux disease
     Dosage: 2.5 GRAM, TID
     Route: 048
     Dates: end: 20250328
  21. OMEGA-3-ACID ETHYL ESTERS [Concomitant]
     Active Substance: OMEGA-3-ACID ETHYL ESTERS
     Indication: Dyslipidaemia
     Dosage: 2 GRAM, BID
     Route: 048
     Dates: end: 20250528
  22. HUMALOG [Concomitant]
     Active Substance: INSULIN LISPRO
     Indication: Type 2 diabetes mellitus
     Dosage: 6 UNIT, TID
     Route: 058
  23. LANTUS SOLOSTAR [Concomitant]
     Active Substance: INSULIN GLARGINE
     Indication: Type 2 diabetes mellitus
     Dosage: 6 UNIT, QD
     Route: 058
  24. VONOPRAZAN FUMARATE [Concomitant]
     Active Substance: VONOPRAZAN FUMARATE
     Indication: Gastrooesophageal reflux disease
     Dosage: 10 MILLIGRAM, QD
     Route: 048
     Dates: start: 20250329
  25. DOTINURAD [Concomitant]
     Active Substance: DOTINURAD
     Indication: Hyperuricaemia
     Dosage: 1 MILLIGRAM, QD
     Route: 048
     Dates: start: 20250328

REACTIONS (3)
  - Coronary artery disease [Recovering/Resolving]
  - Cardiac failure chronic [Recovered/Resolved]
  - Nephrogenic anaemia [Recovering/Resolving]

NARRATIVE: CASE EVENT DATE: 20250124
